FAERS Safety Report 26200738 (Version 1)
Quarter: 2025Q4

REPORT INFORMATION
  Report Type: Spontaneous
  Country: US (occurrence: US)
  Receive Date: 20251226
  Receipt Date: 20251226
  Transmission Date: 20260117
  Serious: Yes (Other)
  Sender: STRIDES
  Company Number: US-STRIDES ARCOLAB LIMITED-2025SP001086

PATIENT
  Sex: Male

DRUGS (4)
  1. ALBENDAZOLE [Suspect]
     Active Substance: ALBENDAZOLE
     Indication: Microsporidia infection
     Dosage: UNK
     Route: 048
  2. ALBENDAZOLE [Suspect]
     Active Substance: ALBENDAZOLE
     Indication: Keratitis fungal
  3. FUMAGILLIN [Suspect]
     Active Substance: FUMAGILLIN
     Indication: Microsporidia infection
     Dosage: UNK
     Route: 061
  4. FUMAGILLIN [Suspect]
     Active Substance: FUMAGILLIN
     Indication: Keratitis fungal

REACTIONS (1)
  - Drug ineffective for unapproved indication [Unknown]
